FAERS Safety Report 23594823 (Version 2)
Quarter: 2024Q2

REPORT INFORMATION
  Report Type: Spontaneous
  Country: US (occurrence: US)
  Receive Date: 20240305
  Receipt Date: 20240515
  Transmission Date: 20240716
  Serious: Yes (Other)
  Sender: FDA-Public Use
  Company Number: US-BRISTOL-MYERS SQUIBB COMPANY-2024-034667

PATIENT
  Age: 76 Year
  Sex: Female

DRUGS (1)
  1. LENALIDOMIDE [Suspect]
     Active Substance: LENALIDOMIDE
     Indication: Cardiac failure congestive
     Dosage: TAKE 1 CAPSULE BY MOUTH EVERY OTHER DAY FOR 21 DAYS EVERY 28 DAY CYCLE
     Route: 048

REACTIONS (3)
  - COVID-19 [Not Recovered/Not Resolved]
  - Off label use [Unknown]
  - Bronchitis [Recovered/Resolved]
